FAERS Safety Report 7390344-6 (Version None)
Quarter: 2011Q2

REPORT INFORMATION
  Report Type: 
  Country: None (occurrence: None)
  Receive Date: 20110401
  Receipt Date: 20110325
  Transmission Date: 20111010
  Serious: Yes (Other)
  Sender: FDA-Public Use
  Company Number: US-US-EMD SERONO, INC.-7050365

PATIENT
  Sex: Female

DRUGS (1)
  1. REBIF [Suspect]
     Indication: PRODUCT USED FOR UNKNOWN INDICATION
     Route: 058
     Dates: start: 20071029

REACTIONS (7)
  - OEDEMA [None]
  - COUGH [None]
  - HEPATIC ENZYME INCREASED [None]
  - SKELETAL INJURY [None]
  - INFLAMMATION [None]
  - GRANULOMATOUS LIVER DISEASE [None]
  - SKIN DISCOLOURATION [None]
